FAERS Safety Report 12330391 (Version 11)
Quarter: 2020Q2

REPORT INFORMATION
  Report Type: Report from Study
  Country: US (occurrence: US)
  Receive Date: 20160504
  Receipt Date: 20200523
  Transmission Date: 20200713
  Serious: Yes (Other)
  Sender: FDA-Public Use
  Company Number: PHHY2016US048301

PATIENT
  Age: 32 Year
  Sex: Female

DRUGS (1)
  1. GILENYA [Suspect]
     Active Substance: FINGOLIMOD HYDROCHLORIDE
     Indication: MULTIPLE SCLEROSIS
     Dosage: UNK, QD
     Route: 048

REACTIONS (13)
  - Photophobia [Unknown]
  - Paraesthesia [Recovered/Resolved]
  - Lymphocyte count decreased [Unknown]
  - Pharyngitis streptococcal [Unknown]
  - Alanine aminotransferase increased [Unknown]
  - Headache [Unknown]
  - Fatigue [Unknown]
  - Uhthoff^s phenomenon [Unknown]
  - Anxiety [Unknown]
  - Depression [Unknown]
  - White blood cell count decreased [Unknown]
  - Aspartate aminotransferase increased [Unknown]
  - Hypoaesthesia [Recovered/Resolved]

NARRATIVE: CASE EVENT DATE: 20160211
